FAERS Safety Report 6645278-9 (Version None)
Quarter: 2010Q1

REPORT INFORMATION
  Report Type: 
  Country: None (occurrence: None)
  Receive Date: 20100322
  Receipt Date: 20100318
  Transmission Date: 20100710
  Serious: Yes (Hospitalization)
  Sender: FDA-Public Use
  Company Number: PHHO2007US20126

PATIENT
  Sex: Male
  Weight: 151.7 kg

DRUGS (3)
  1. AFINITOR [Suspect]
     Indication: NON-SMALL CELL LUNG CANCER
     Dosage: UNK, UNK
     Route: 048
     Dates: start: 20071120, end: 20071204
  2. PACLITAXEL [Suspect]
     Indication: NON-SMALL CELL LUNG CANCER
  3. CARBOPLATIN [Suspect]
     Indication: NON-SMALL CELL LUNG CANCER

REACTIONS (4)
  - CELLULITIS [None]
  - FEBRILE NEUTROPENIA [None]
  - PYREXIA [None]
  - THROMBOCYTOPENIA [None]
